FAERS Safety Report 6230489-7 (Version None)
Quarter: 2009Q2

REPORT INFORMATION
  Report Type: 
  Country: None (occurrence: None)
  Receive Date: 20090611
  Receipt Date: 20090529
  Transmission Date: 20091009
  Serious: Yes (Hospitalization)
  Sender: FDA-Public Use
  Company Number: 430075J08USA

PATIENT
  Age: 44 Year
  Sex: Male
  Weight: 90 kg

DRUGS (8)
  1. NOVANTRONE [Suspect]
     Indication: MULTIPLE SCLEROSIS
     Dosage: 4 IN 1 YEARS, INTRAVENOUS (NOT OTHERWISE SPECIFIED)
     Route: 042
     Dates: start: 20070910
  2. LEVAQUIN [Suspect]
     Indication: URINARY TRACT INFECTION
     Dosage: ONCE
     Dates: start: 20071224
  3. AMANTADINE HCL [Concomitant]
  4. BACLOFEN [Concomitant]
  5. NEURONTIN [Concomitant]
  6. LYRICA [Concomitant]
  7. LEXAPRO [Concomitant]
  8. ADVIL [Concomitant]

REACTIONS (4)
  - CATHETER RELATED INFECTION [None]
  - COMA [None]
  - CONVULSION [None]
  - URINARY TRACT INFECTION [None]
